FAERS Safety Report 18432068 (Version 1)
Quarter: 2020Q4

REPORT INFORMATION
  Report Type: Report from Study
  Country: BR (occurrence: BR)
  Receive Date: 20201027
  Receipt Date: 20201027
  Transmission Date: 20210114
  Serious: Yes (Other)
  Sender: FDA-Public Use
  Company Number: NVSC2020BR120969

PATIENT
  Age: 67 Year
  Sex: Female

DRUGS (1)
  1. DIOVAN HCT [Suspect]
     Active Substance: HYDROCHLOROTHIAZIDE\VALSARTAN
     Indication: PRODUCT USED FOR UNKNOWN INDICATION
     Dosage: 320/12,5MG (TABLET)
     Route: 065
     Dates: start: 2019

REACTIONS (5)
  - Swelling [Unknown]
  - Product dispensing error [Unknown]
  - Cervix carcinoma [Not Recovered/Not Resolved]
  - Drug intolerance [Unknown]
  - Feeling abnormal [Unknown]

NARRATIVE: CASE EVENT DATE: 20200901
